FAERS Safety Report 6124995-3 (Version None)
Quarter: 2009Q1

REPORT INFORMATION
  Report Type: 
  Country: None (occurrence: None)
  Receive Date: 20090319
  Receipt Date: 20090304
  Transmission Date: 20090719
  Serious: Yes (Hospitalization, Other)
  Sender: FDA-Public Use
  Company Number: ES-PFIZER INC-2009174128

PATIENT

DRUGS (4)
  1. CABERGOLINE [Suspect]
     Indication: PARKINSON'S DISEASE
     Dosage: UNK
     Route: 048
  2. LEVODOPA [Concomitant]
     Dosage: UNK
  3. METHYLPHENIDATE HYDROCHLORIDE [Concomitant]
     Dosage: UNK
  4. RASAGILINE [Concomitant]
     Dosage: UNK

REACTIONS (6)
  - BUNDLE BRANCH BLOCK RIGHT [None]
  - CARDIAC MURMUR [None]
  - MITRAL VALVE INCOMPETENCE [None]
  - PLEURAL EFFUSION [None]
  - PULMONARY HYPERTENSION [None]
  - TRICUSPID VALVE INCOMPETENCE [None]
